FAERS Safety Report 5661737-X (Version None)
Quarter: 2008Q1

REPORT INFORMATION
  Report Type: 
  Country: None (occurrence: None)
  Receive Date: 20080312
  Receipt Date: 20080306
  Transmission Date: 20080703
  Serious: Yes (Death)
  Sender: FDA-Public Use
  Company Number: B0511862A

PATIENT
  Age: 21 Month
  Sex: Female

DRUGS (10)
  1. ZIDOVUDINE [Suspect]
     Indication: HIV INFECTION
     Dosage: 110MG TWICE PER DAY
     Route: 048
     Dates: start: 20060728, end: 20080214
  2. LAMIVUDINE [Suspect]
     Indication: HIV INFECTION
     Dosage: 40MG TWICE PER DAY
     Route: 048
     Dates: start: 20060728, end: 20080214
  3. KALETRA [Suspect]
     Indication: HIV INFECTION
     Dosage: 112MG TWICE PER DAY
     Route: 048
     Dates: start: 20060728, end: 20080214
  4. AMOXICILLIN [Concomitant]
  5. FLUCLOXACILLIN [Concomitant]
  6. ISONIAZID [Concomitant]
  7. COTRIMOXAZOLE [Concomitant]
  8. MULTI-VITAMIN [Concomitant]
  9. FERROUS GLUCONATE [Concomitant]
  10. ALBUTEROL [Concomitant]

REACTIONS (1)
  - DEATH [None]
